FAERS Safety Report 6848654-4 (Version None)
Quarter: 2010Q3

REPORT INFORMATION
  Report Type: 
  Country: None (occurrence: None)
  Receive Date: 20100716
  Receipt Date: 20070906
  Transmission Date: 20110219
  Serious: Yes (Other)
  Sender: FDA-Public Use
  Company Number: US-PFIZER INC-2007074907

PATIENT
  Sex: Female
  Weight: 77.272 kg

DRUGS (4)
  1. CHANTIX [Suspect]
     Indication: SMOKING CESSATION THERAPY
     Dates: start: 20070824
  2. NORVASC [Concomitant]
  3. LISINOPRIL [Concomitant]
  4. ZETIA [Concomitant]

REACTIONS (1)
  - ARTHRALGIA [None]
